FAERS Safety Report 7117968-5 (Version None)
Quarter: 2010Q4

REPORT INFORMATION
  Report Type: 
  Country: None (occurrence: None)
  Receive Date: 20101123
  Receipt Date: 20101119
  Transmission Date: 20110411
  Serious: Yes (Death)
  Sender: FDA-Public Use
  Company Number: PHFR2010GB04515

PATIENT
  Sex: Male

DRUGS (3)
  1. CLOZARIL [Suspect]
     Indication: SCHIZOPHRENIA
     Dosage: 700 MG, UNK
     Route: 048
     Dates: start: 19910624
  2. FLUOXETINE [Concomitant]
     Dosage: 40 MG, UNK
     Route: 048
  3. PROPRANOLOL [Concomitant]
     Route: 048

REACTIONS (1)
  - DROWNING [None]
